FAERS Safety Report 6504814-3 (Version None)
Quarter: 2009Q4

REPORT INFORMATION
  Report Type: 
  Country: None (occurrence: None)
  Receive Date: 20091216
  Receipt Date: 20091120
  Transmission Date: 20100525
  Serious: Yes (Hospitalization)
  Sender: FDA-Public Use
  Company Number: AE-2009-304

PATIENT
  Age: 81 Year
  Sex: Female
  Weight: 70 kg

DRUGS (6)
  1. FUROSEMIDE [Suspect]
     Indication: CARDIAC FAILURE
     Dosage: 20MG, BID ORAL
     Route: 048
  2. HYDROCHLOROTHIAZIDE [Suspect]
     Indication: CARDIAC FAILURE
     Dosage: 25MG, QD ORAL
     Route: 048
  3. NEBIVOLOL HCL [Suspect]
     Indication: HYPERTENSION
     Dosage: 2.5MG, QD, ORAL
     Route: 048
  4. CANDESARTAN CILEXETIL [Suspect]
     Indication: HYPERTENSION
     Dosage: 16MG, QD, ORAL
     Route: 048
  5. ACETYLSALICYLIC ACID [Concomitant]
  6. MOLSIDOMINE [Concomitant]

REACTIONS (1)
  - HYPOTENSION [None]
